FAERS Safety Report 7306210-8 (Version None)
Quarter: 2011Q1

REPORT INFORMATION
  Report Type: 
  Country: None (occurrence: None)
  Receive Date: 20110222
  Receipt Date: 20110209
  Transmission Date: 20110831
  Serious: Yes (Other)
  Sender: FDA-Public Use
  Company Number: PHHY2011GB05453

PATIENT
  Age: 44 Year
  Sex: Male

DRUGS (2)
  1. PROPRANOLOL [Suspect]
     Dosage: 20 MG EVERY 03 DAYS
  2. PROPRANOLOL [Suspect]
     Indication: HYPERTENSION
     Dosage: 160 MG DAILY

REACTIONS (4)
  - TONSILLAR HYPERTROPHY [None]
  - SLEEP DISORDER [None]
  - RAPID EYE MOVEMENTS SLEEP ABNORMAL [None]
  - SLEEP APNOEA SYNDROME [None]
